FAERS Safety Report 8371665-7 (Version None)
Quarter: 2012Q2

REPORT INFORMATION
  Report Type: 
  Country: None (occurrence: None)
  Receive Date: 20120518
  Receipt Date: 20120509
  Transmission Date: 20120825
  Serious: Yes (Hospitalization)
  Sender: FDA-Public Use
  Company Number: AU-ALLERGAN-1206781US

PATIENT
  Age: 88 Year
  Sex: Male

DRUGS (3)
  1. OZURDEX [Suspect]
     Dosage: 0.7 MG, SINGLE
     Route: 031
     Dates: start: 20110325, end: 20110325
  2. OZURDEX [Suspect]
     Indication: DIABETIC RETINAL OEDEMA
     Dosage: 0.7 MG, SINGLE
     Route: 031
     Dates: start: 20101008, end: 20101008
  3. OZURDEX [Suspect]
     Dosage: 0.7 MG, SINGLE
     Route: 031
     Dates: start: 20111021, end: 20111021

REACTIONS (2)
  - RIB FRACTURE [None]
  - PNEUMONIA [None]
